FAERS Safety Report 7780928-5 (Version None)
Quarter: 2011Q3

REPORT INFORMATION
  Report Type: 
  Country: None (occurrence: None)
  Receive Date: 20110927
  Receipt Date: 20110920
  Transmission Date: 20111222
  Serious: Yes (Death, Life-Threatening, Hospitalization)
  Sender: FDA-Public Use
  Company Number: US-JNJFOC-20110611913

PATIENT
  Sex: Female
  Weight: 76.2 kg

DRUGS (38)
  1. TRUVADA [Concomitant]
     Indication: HIV INFECTION
     Route: 048
     Dates: start: 20110329, end: 20110531
  2. RALTEGRAVIR [Concomitant]
     Indication: HIV INFECTION
     Route: 048
     Dates: start: 20110329, end: 20110531
  3. ADVAIR DISKUS 100/50 [Concomitant]
     Route: 055
     Dates: start: 20070820
  4. IBUPROFEN [Concomitant]
     Route: 048
     Dates: start: 20070611
  5. PROVENTIL [Concomitant]
     Indication: DYSPNOEA
     Route: 055
     Dates: start: 20040224
  6. TMC114 [Suspect]
     Indication: HIV INFECTION
     Route: 048
     Dates: start: 20110329, end: 20110531
  7. TMC114 [Suspect]
     Route: 048
     Dates: start: 20110816
  8. DIOVAN HCT [Concomitant]
     Route: 048
     Dates: start: 20110805
  9. VALTREX [Concomitant]
     Route: 048
     Dates: start: 20091019
  10. SEROQUEL [Concomitant]
     Dates: start: 20110311
  11. PROMETHAZINE W/ CODEINE [Concomitant]
     Indication: UPPER RESPIRATORY TRACT INFECTION
  12. ETRAVIRINE [Suspect]
     Indication: HIV INFECTION
     Route: 048
     Dates: start: 20110329, end: 20110531
  13. RITONAVIR [Concomitant]
     Route: 048
     Dates: start: 20110329, end: 20110531
  14. METHADONE HCL [Concomitant]
     Dates: start: 20090818
  15. WESTCORT [Concomitant]
     Route: 061
     Dates: start: 20110617
  16. LIPITOR [Concomitant]
     Route: 048
     Dates: start: 20110826
  17. RITONAVIR [Concomitant]
     Indication: HIV INFECTION
     Route: 048
     Dates: start: 20110816
  18. LAMIVUDINE [Concomitant]
     Indication: HIV INFECTION
     Route: 048
     Dates: start: 20110816
  19. STROVITE [Concomitant]
     Route: 048
     Dates: start: 20060707
  20. METFORMIN HCL [Concomitant]
     Route: 048
     Dates: start: 20110502
  21. STROVITE FORTE [Concomitant]
     Route: 048
     Dates: start: 20030821
  22. AMBIEN [Concomitant]
     Route: 048
     Dates: start: 20091020
  23. ZITHROMAX [Concomitant]
     Dates: start: 20101123
  24. PROMETHAZINE W/ CODEINE [Concomitant]
     Indication: COUGH
  25. LOTRISONE [Concomitant]
     Dates: start: 20110722
  26. ABACAVIR [Suspect]
     Indication: HIV INFECTION
     Dates: start: 20110816
  27. TRUVADA [Concomitant]
     Route: 048
     Dates: start: 20090922
  28. RALTEGRAVIR [Concomitant]
     Route: 048
     Dates: start: 20110816
  29. METHADONE HCL [Concomitant]
     Dates: start: 20110805
  30. PERCOCET [Concomitant]
     Dates: start: 20101110
  31. ADVAIR DISKUS 100/50 [Concomitant]
     Route: 055
     Dates: start: 20091002
  32. LAC-HYDRIN [Concomitant]
     Indication: DRY SKIN
     Route: 061
     Dates: start: 20110617
  33. NORVASC [Concomitant]
     Route: 048
     Dates: start: 20100921
  34. ALLEGRA [Concomitant]
     Route: 048
     Dates: start: 20110722
  35. DIOVAN HCT [Concomitant]
     Route: 048
     Dates: start: 20090922
  36. POTASSIUM CHLORIDE [Concomitant]
     Route: 048
     Dates: start: 20091123
  37. LOMOTIL [Concomitant]
     Indication: DIARRHOEA
     Route: 048
     Dates: start: 20100222
  38. BACTRIM [Concomitant]
     Route: 048
     Dates: start: 20090918

REACTIONS (5)
  - RENAL FAILURE ACUTE [None]
  - RASH [None]
  - SEPTIC SHOCK [None]
  - UROSEPSIS [None]
  - HEPATIC FAILURE [None]
